FAERS Safety Report 4886221-2 (Version None)
Quarter: 2006Q1

REPORT INFORMATION
  Report Type: 
  Country: None (occurrence: None)
  Receive Date: 20060118
  Receipt Date: 20060109
  Transmission Date: 20060701
  Serious: Yes (Other)
  Sender: FDA-Public Use
  Company Number: 2005-12-0413

PATIENT
  Sex: Female

DRUGS (5)
  1. PEG-INTRON [Suspect]
     Indication: HEPATITIS C
     Dosage: SEE IMAGE
     Dates: start: 20050419
  2. REBETOL [Suspect]
     Indication: HEPATITIS C
     Dosage: 800 MG QD ORAL
     Route: 048
     Dates: start: 20050419
  3. FOSAMAX [Concomitant]
  4. LEVOTHYROXINE SODIUM [Concomitant]
  5. ZOLOFT [Concomitant]

REACTIONS (11)
  - ASTHMA [None]
  - CONDITION AGGRAVATED [None]
  - DYSPHONIA [None]
  - GALLBLADDER NON-FUNCTIONING [None]
  - HYPOTHYROIDISM [None]
  - NAUSEA [None]
  - OCULAR VASCULAR DISORDER [None]
  - RETINAL EXUDATES [None]
  - VIRAL LOAD INCREASED [None]
  - VISUAL DISTURBANCE [None]
  - VOMITING [None]
